FAERS Safety Report 9641358 (Version 2)
Quarter: 2013Q4

REPORT INFORMATION
  Report Type: Spontaneous
  Country: US (occurrence: US)
  Receive Date: 20131023
  Receipt Date: 20131230
  Transmission Date: 20140711
  Serious: Yes (Other)
  Sender: FDA-Public Use
  Company Number: US-ENDO PHARMACEUTICALS INC.-PERP20130004

PATIENT
  Age: 10 Year
  Sex: Male
  Weight: 43.13 kg

DRUGS (2)
  1. PERPHENAZINE TABLETS 16MG [Suspect]
     Indication: PSYCHOTIC DISORDER
     Route: 048
     Dates: start: 2012, end: 20131003
  2. PERPHENAZINE TABLETS 16MG [Suspect]
     Indication: AGGRESSION
     Route: 048
     Dates: start: 2012, end: 20131003

REACTIONS (2)
  - Aggression [Recovered/Resolved]
  - Drug ineffective [Recovered/Resolved]
